FAERS Safety Report 19620254 (Version 1)
Quarter: 2021Q3

REPORT INFORMATION
  Report Type: Spontaneous
  Country: US (occurrence: US)
  Receive Date: 20210727
  Receipt Date: 20210727
  Transmission Date: 20211014
  Serious: Yes (Other)
  Sender: FDA-Public Use
  Company Number: None

PATIENT
  Age: 73 Year
  Sex: Male
  Weight: 80 kg

DRUGS (1)
  1. ANDEXXA [Suspect]
     Active Substance: ANDEXANET ALFA
     Indication: PROCOAGULANT THERAPY
     Dosage: ?          OTHER FREQUENCY:ONCE;?
     Route: 042
     Dates: start: 20210709, end: 20210709

REACTIONS (5)
  - Deep vein thrombosis [None]
  - Splenic rupture [None]
  - Pyrexia [None]
  - Babesiosis [None]
  - Pulmonary embolism [None]

NARRATIVE: CASE EVENT DATE: 20210713
